FAERS Safety Report 7249655-7 (Version None)
Quarter: 2011Q1

REPORT INFORMATION
  Report Type: 
  Country: None (occurrence: None)
  Receive Date: 20110128
  Receipt Date: 20110119
  Transmission Date: 20110831
  Serious: Yes (Hospitalization)
  Sender: FDA-Public Use
  Company Number: LB-SANOFI-AVENTIS-2011SA003876

PATIENT
  Age: 37 Year
  Sex: Male
  Weight: 110 kg

DRUGS (4)
  1. ELOXATIN [Suspect]
  2. ELOXATIN [Suspect]
     Indication: RECTOSIGMOID CANCER
     Dates: start: 20100804, end: 20100804
  3. ZOFRAN [Concomitant]
  4. XELODA [Suspect]
     Indication: RECTOSIGMOID CANCER
     Dates: start: 20100804

REACTIONS (1)
  - CHOLECYSTITIS [None]
